FAERS Safety Report 6666556-3 (Version None)
Quarter: 2010Q2

REPORT INFORMATION
  Report Type: 
  Country: None (occurrence: None)
  Receive Date: 20100402
  Receipt Date: 20100326
  Transmission Date: 20101027
  Serious: Yes (Other)
  Sender: FDA-Public Use
  Company Number: US-AMGEN-QUU384396

PATIENT
  Sex: Male
  Weight: 70.4 kg

DRUGS (3)
  1. ENBREL [Suspect]
     Indication: PSORIATIC ARTHROPATHY
     Route: 058
     Dates: start: 20030201
  2. METHOTREXATE [Concomitant]
     Route: 048
     Dates: start: 20030201
  3. PREDNISONE TAB [Concomitant]

REACTIONS (6)
  - MUSCULOSKELETAL STIFFNESS [None]
  - PHARYNGITIS [None]
  - PSORIATIC ARTHROPATHY [None]
  - SUICIDAL IDEATION [None]
  - TRANSAMINASES ABNORMAL [None]
  - VASCULAR INSUFFICIENCY [None]
